FAERS Safety Report 15595867 (Version 2)
Quarter: 2018Q4

REPORT INFORMATION
  Report Type: Spontaneous
  Country: BR (occurrence: BR)
  Receive Date: 20181107
  Receipt Date: 20181230
  Transmission Date: 20190205
  Serious: Yes (Other)
  Sender: FDA-Public Use
  Company Number: BR-AMGEN-BRASP2018156154

PATIENT
  Age: 66 Year
  Sex: Female

DRUGS (1)
  1. ENBREL [Suspect]
     Active Substance: ETANERCEPT
     Indication: RHEUMATIC DISORDER
     Dosage: UNK
     Route: 065
     Dates: start: 20181023

REACTIONS (10)
  - Intervertebral disc protrusion [Unknown]
  - Nervousness [Unknown]
  - Arthritis [Unknown]
  - Inflammation [Unknown]
  - Spondylitis [Unknown]
  - Spinal disorder [Unknown]
  - Osteoarthritis [Unknown]
  - Tendonitis [Unknown]
  - Glaucoma [Unknown]
  - Agitation [Unknown]
